FAERS Safety Report 24805806 (Version 2)
Quarter: 2025Q1

REPORT INFORMATION
  Report Type: Spontaneous
  Country: US (occurrence: US)
  Receive Date: 20250103
  Receipt Date: 20250225
  Transmission Date: 20250409
  Serious: Yes (Death, Hospitalization)
  Sender: PFIZER
  Company Number: US-PFIZER INC-PV202200058794

PATIENT
  Age: 78 Year
  Sex: Female
  Weight: 54.431 kg

DRUGS (5)
  1. IBRANCE [Suspect]
     Active Substance: PALBOCICLIB
     Indication: Breast cancer metastatic
     Dosage: 125 MG, 1X/DAY (ONCE A DAY FOR 21DAYS)
     Route: 048
     Dates: start: 2019
  2. IBRANCE [Suspect]
     Active Substance: PALBOCICLIB
     Indication: Acute myeloid leukaemia
     Dosage: 125 MG, DAILY MORNING
     Route: 048
     Dates: start: 20221205, end: 20240509
  3. AMLODIPINE [Concomitant]
     Active Substance: AMLODIPINE BESYLATE
     Indication: Hypertension
     Dosage: 10 MG, DAILY
  4. LETROZOLE [Concomitant]
     Active Substance: LETROZOLE
     Indication: Breast cancer
     Dosage: 2.5 MG, DAILY
  5. HYDROCHLOROTHIAZIDE\LOSARTAN [Concomitant]
     Active Substance: HYDROCHLOROTHIAZIDE\LOSARTAN
     Indication: Hypertension
     Dosage: 100/25 MG

REACTIONS (4)
  - Bone marrow failure [Fatal]
  - Coagulopathy [Fatal]
  - Skin laceration [Fatal]
  - Haemorrhage [Fatal]

NARRATIVE: CASE EVENT DATE: 20240503
